FAERS Safety Report 5511177-9 (Version None)
Quarter: 2007Q4

REPORT INFORMATION
  Report Type: 
  Country: None (occurrence: None)
  Receive Date: 20071109
  Receipt Date: 20071029
  Transmission Date: 20080405
  Serious: Yes (Life-Threatening)
  Sender: FDA-Public Use
  Company Number: SA-ELI_LILLY_AND_COMPANY-SA200710006948

PATIENT
  Age: 52 Year
  Sex: Female
  Weight: 69 kg

DRUGS (4)
  1. FORTEO [Suspect]
     Dosage: UNK UNK, DAILY (1/D)
     Route: 058
     Dates: start: 20070801, end: 20070901
  2. CALCIUM [Concomitant]
     Dosage: UNK, UNKNOWN
     Route: 065
  3. METHOTREXATE [Concomitant]
     Dosage: 10 MG, UNKNOWN
     Route: 065
  4. DICLOFENAC SODIUM [Concomitant]
     Dosage: UNK , UNK
     Route: 065

REACTIONS (3)
  - CHILLS [None]
  - PAIN [None]
  - TREMOR [None]
